FAERS Safety Report 6899669-1 (Version None)
Quarter: 2010Q3

REPORT INFORMATION
  Report Type: 
  Country: None (occurrence: None)
  Receive Date: 20100708
  Receipt Date: 20100301
  Transmission Date: 20110219
  Serious: Yes (Other)
  Sender: FDA-Public Use
  Company Number: 2010027241

PATIENT
  Age: 37 Year
  Sex: Female
  Weight: 59 kg

DRUGS (4)
  1. CHANTIX [Suspect]
     Indication: SMOKING CESSATION THERAPY
     Dosage: 0.5 MG, 2X/DAY, ORAL
     Route: 048
     Dates: start: 20100222
  2. SYMBICORT [Concomitant]
  3. SPIVIRA (TIOTROPIUM BROMIDE) [Concomitant]
  4. PRO-AIR (PROCATEROL HYDROCHLORIDE) [Concomitant]

REACTIONS (5)
  - AGITATION [None]
  - CHEST PAIN [None]
  - FATIGUE [None]
  - MYALGIA [None]
  - PAIN IN EXTREMITY [None]
